FAERS Safety Report 21447663 (Version 3)
Quarter: 2022Q4

REPORT INFORMATION
  Report Type: Report from Study
  Country: JP (occurrence: JP)
  Receive Date: 20221012
  Receipt Date: 20221104
  Transmission Date: 20230112
  Serious: Yes (Death, Hospitalization)
  Sender: FDA-Public Use
  Company Number: JP-TAKEDA-2022TJP073066

PATIENT
  Age: 78 Year
  Sex: Female
  Weight: 55.6 kg

DRUGS (15)
  1. BRENTUXIMAB VEDOTIN [Suspect]
     Active Substance: BRENTUXIMAB VEDOTIN
     Indication: Hodgkin^s disease
     Dosage: 1.2 MILLIGRAM/KILOGRAM
     Route: 041
     Dates: start: 20220826
  2. BRENTUXIMAB VEDOTIN [Suspect]
     Active Substance: BRENTUXIMAB VEDOTIN
     Dosage: 0.9 MILLIGRAM/KILOGRAM
     Route: 041
     Dates: start: 20220916
  3. DOXORUBICIN HYDROCHLORIDE [Concomitant]
     Active Substance: DOXORUBICIN HYDROCHLORIDE
     Indication: Hodgkin^s disease
     Dosage: 25 MILLIGRAM/SQ. METER
     Route: 041
     Dates: start: 20220826
  4. DOXORUBICIN HYDROCHLORIDE [Concomitant]
     Active Substance: DOXORUBICIN HYDROCHLORIDE
     Dosage: 18.75 MILLIGRAM/SQ. METER
     Route: 041
     Dates: start: 20220916
  5. VINBLASTINE SULFATE [Concomitant]
     Active Substance: VINBLASTINE SULFATE
     Indication: Hodgkin^s disease
     Dosage: 6 MILLIGRAM/SQ. METER
     Route: 041
     Dates: start: 20220826
  6. VINBLASTINE SULFATE [Concomitant]
     Active Substance: VINBLASTINE SULFATE
     Dosage: 4.5 MILLIGRAM/SQ. METER
     Route: 041
     Dates: start: 20220916
  7. DACARBAZINE [Concomitant]
     Active Substance: DACARBAZINE
     Indication: Hodgkin^s disease
     Dosage: 375 MILLIGRAM/SQ. METER
     Route: 041
     Dates: start: 20220826
  8. DACARBAZINE [Concomitant]
     Active Substance: DACARBAZINE
     Dosage: 280 MILLIGRAM/SQ. METER
     Route: 041
     Dates: start: 20220916
  9. FEBUXOSTAT [Concomitant]
     Active Substance: FEBUXOSTAT
     Indication: Hyperuricaemia
     Dosage: 10 MILLIGRAM, QD
     Route: 048
     Dates: start: 20190520, end: 20220929
  10. LANSOPRAZOLE [Concomitant]
     Active Substance: LANSOPRAZOLE
     Indication: Prophylaxis
     Dosage: 15 MILLIGRAM, QD
     Route: 048
     Dates: start: 20190701, end: 20220929
  11. AMLODIPINE BESYLATE [Concomitant]
     Active Substance: AMLODIPINE BESYLATE
     Indication: Hypertension
     Dosage: 5 MILLIGRAM, QD
     Route: 048
     Dates: start: 20190701, end: 20220929
  12. TORSEMIDE [Concomitant]
     Active Substance: TORSEMIDE
     Indication: Hypertension
     Dosage: 4 MILLIGRAM, QD
     Route: 048
     Dates: start: 20200327, end: 20220929
  13. ZOVIRAX [Concomitant]
     Active Substance: ACYCLOVIR
     Indication: Prophylaxis
     Dosage: 200 MILLIGRAM
     Route: 048
     Dates: start: 20220825, end: 20220929
  14. ENTECAVIR [Concomitant]
     Active Substance: ENTECAVIR
     Indication: Prophylaxis
     Dosage: 0.5 MILLIGRAM
     Route: 048
     Dates: start: 20220825, end: 20220929
  15. GRANULOCYTE COLONY-STIMULATING FACTOR NOS [Concomitant]
     Active Substance: GRANULOCYTE COLONY-STIMULATING FACTOR NOS
     Indication: Prophylaxis
     Dosage: UNK UNK, QOD
     Route: 065
     Dates: start: 20220918, end: 20221010

REACTIONS (6)
  - Stomatitis [Fatal]
  - Febrile neutropenia [Recovered/Resolved]
  - Sepsis [Recovered/Resolved]
  - Febrile neutropenia [Fatal]
  - Anaemia [Recovered/Resolved]
  - Sepsis [Fatal]

NARRATIVE: CASE EVENT DATE: 20220903
